FAERS Safety Report 7441558-8 (Version None)
Quarter: 2011Q2

REPORT INFORMATION
  Report Type: 
  Country: None (occurrence: None)
  Receive Date: 20110425
  Receipt Date: 20110425
  Transmission Date: 20111010
  Serious: Yes (Death)
  Sender: FDA-Public Use
  Company Number: None

PATIENT
  Age: 70 Year
  Sex: Female
  Weight: 113.3993 kg

DRUGS (2)
  1. PRISTIQ [Suspect]
     Indication: DEPRESSION
     Dosage: 50 MG ONE TAB EVERY DAY PO
     Route: 048
     Dates: start: 20100706, end: 20110221
  2. ABILIFY [Suspect]
     Indication: DEPRESSION
     Dosage: 10MG ONE TAB EVERY DAY PO
     Route: 048
     Dates: start: 20101004, end: 20110221

REACTIONS (7)
  - ABASIA [None]
  - PYREXIA [None]
  - URINE OUTPUT DECREASED [None]
  - BACK PAIN [None]
  - MUSCLE SPASMS [None]
  - ASTHENIA [None]
  - NECK PAIN [None]
